FAERS Safety Report 8889708 (Version 1)
Quarter: 2012Q4

REPORT INFORMATION
  Report Type: 
  Country: US (occurrence: US)
  Receive Date: 20121107
  Receipt Date: 20121107
  Transmission Date: 20130627
  Serious: No
  Sender: FDA-Public Use
  Company Number: US-BIOGENIDEC-2012BI049352

PATIENT
  Age: 49 Year
  Sex: Female

DRUGS (3)
  1. AVONEX [Suspect]
     Indication: MULTIPLE SCLEROSIS
     Route: 030
     Dates: start: 20030620, end: 201210
  2. AVONEX [Suspect]
     Indication: MULTIPLE SCLEROSIS
     Route: 030
     Dates: start: 201210
  3. IBUPROFEN [Concomitant]
     Indication: PREMEDICATION

REACTIONS (3)
  - Feeling of body temperature change [Not Recovered/Not Resolved]
  - Influenza like illness [Not Recovered/Not Resolved]
  - Insomnia [Not Recovered/Not Resolved]
